FAERS Safety Report 8093074-0 (Version None)
Quarter: 2012Q1

REPORT INFORMATION
  Report Type: 
  Country: None (occurrence: None)
  Receive Date: 20120128
  Receipt Date: 20111018
  Transmission Date: 20120608
  Serious: No
  Sender: FDA-Public Use
  Company Number: US-ABBOTT-11P-163-0838160-00

PATIENT
  Age: 23 Year
  Sex: Male

DRUGS (4)
  1. HUMIRA [Suspect]
     Dates: start: 20111013
  2. TACLONEX [Concomitant]
     Indication: PSORIASIS
     Route: 061
  3. VECTICAL [Concomitant]
     Indication: PSORIASIS
     Route: 061
  4. HUMIRA [Suspect]
     Indication: PSORIASIS
     Dates: start: 20110601

REACTIONS (2)
  - ABDOMINAL PAIN [None]
  - FATIGUE [None]
